FAERS Safety Report 9012316 (Version 1)
Quarter: 2012Q4

REPORT INFORMATION
  Report Type: Spontaneous
  Country: US (occurrence: None)
  Receive Date: 20121231
  Receipt Date: 20121231
  Transmission Date: 20130627
  Serious: Yes (Other)
  Sender: FDA-Public Use
  Company Number: 2012P1068142

PATIENT
  Age: 21 Year
  Sex: Female

DRUGS (3)
  1. MYORISAN 40 MG [Suspect]
     Dates: start: 20121115
  2. MYORISAN 40 MG [Suspect]
     Dates: start: 20121115
  3. EMERGENCY BIRTH CONTROL [Concomitant]

REACTIONS (3)
  - Vaginal haemorrhage [None]
  - Pregnancy [None]
  - Exposure during pregnancy [None]
